FAERS Safety Report 21354304 (Version 2)
Quarter: 2022Q3

REPORT INFORMATION
  Report Type: Spontaneous
  Country: TR (occurrence: TR)
  Receive Date: 20220920
  Receipt Date: 20220927
  Transmission Date: 20221027
  Serious: No
  Sender: FDA-Public Use
  Company Number: TR-PFIZER INC-PV202200053427

PATIENT

DRUGS (1)
  1. NIMENRIX [Suspect]
     Active Substance: CLOSTRIDIUM TETANI TOXOID ANTIGEN (FORMALDEHYDE INACTIVATED)\MENINGOCOCCAL POLYSACCHARIDE VACCINE, G
     Indication: Immunisation
     Dosage: DOSE NUMBER UNKNOWN, SINGLE

REACTIONS (1)
  - Device breakage [Unknown]
